FAERS Safety Report 6889558-0 (Version None)
Quarter: 2010Q3

REPORT INFORMATION
  Report Type: 
  Country: None (occurrence: None)
  Receive Date: 20100730
  Receipt Date: 20080314
  Transmission Date: 20110219
  Serious: No
  Sender: FDA-Public Use
  Company Number: US-PFIZER INC-2008025115

PATIENT
  Sex: Male

DRUGS (3)
  1. VIBRAMYCIN [Suspect]
     Indication: PROSTATE INFECTION
  2. DOXYCYCLINE HYCLATE [Suspect]
  3. DOXYCYCLINE [Suspect]
     Indication: PROSTATE INFECTION

REACTIONS (3)
  - DYSGEUSIA [None]
  - PROSTATE INFECTION [None]
  - TINNITUS [None]
